FAERS Safety Report 8026006-1 (Version None)
Quarter: 2012Q1

REPORT INFORMATION
  Report Type: 
  Country: None (occurrence: None)
  Receive Date: 20120105
  Receipt Date: 20110123
  Transmission Date: 20120608
  Serious: No
  Sender: FDA-Public Use
  Company Number: US-ABBOTT-11P-163-0700428-00

PATIENT
  Sex: Female
  Weight: 79.904 kg

DRUGS (2)
  1. SYNTHROID [Suspect]
     Indication: HYPOTHYROIDISM
     Dates: start: 20090101
  2. CYTOMEL [Concomitant]
     Indication: HYPOTHYROIDISM

REACTIONS (7)
  - FEELING COLD [None]
  - WEIGHT INCREASED [None]
  - ACTIVITIES OF DAILY LIVING IMPAIRED [None]
  - DRUG INEFFECTIVE [None]
  - ALOPECIA [None]
  - FATIGUE [None]
  - INCORRECT STORAGE OF DRUG [None]
